FAERS Safety Report 9433711 (Version 1)
Quarter: 2013Q3

REPORT INFORMATION
  Report Type: Spontaneous
  Country: FI (occurrence: FI)
  Receive Date: 20130731
  Receipt Date: 20130731
  Transmission Date: 20140515
  Serious: Yes (Hospitalization)
  Sender: FDA-Public Use
  Company Number: FI-UCBSA-092847

PATIENT
  Sex: Male

DRUGS (2)
  1. VIMPAT [Suspect]
     Indication: PARTIAL SEIZURES WITH SECONDARY GENERALISATION
     Dates: start: 20111230
  2. LAMICTAL [Concomitant]

REACTIONS (2)
  - Atrial fibrillation [Not Recovered/Not Resolved]
  - Convulsion [Recovered/Resolved]
